FAERS Safety Report 6398303-7 (Version None)
Quarter: 2009Q4

REPORT INFORMATION
  Report Type: 
  Country: None (occurrence: None)
  Receive Date: 20091013
  Receipt Date: 20090929
  Transmission Date: 20100525
  Serious: Yes (Other)
  Sender: FDA-Public Use
  Company Number: CA-GENENTECH-291950

PATIENT
  Sex: Female

DRUGS (2)
  1. OMALIZUMAB [Suspect]
     Indication: ASTHMA
     Dosage: 300 MG, Q2W
     Route: 058
     Dates: start: 20090818
  2. OMALIZUMAB [Suspect]
     Dosage: 300 MG, Q2W
     Route: 058
     Dates: start: 20090929

REACTIONS (6)
  - ALOPECIA [None]
  - DIZZINESS [None]
  - DRY SKIN [None]
  - MIGRAINE [None]
  - MUSCULOSKELETAL PAIN [None]
  - PARAESTHESIA ORAL [None]
